FAERS Safety Report 8841719 (Version 1)
Quarter: 2012Q4

REPORT INFORMATION
  Report Type: 
  Country: IN (occurrence: IN)
  Receive Date: 20121016
  Receipt Date: 20121016
  Transmission Date: 20130627
  Serious: Yes (Other)
  Sender: FDA-Public Use
  Company Number: IN-MERCK-1210IND006236

PATIENT
  Sex: Female

DRUGS (2)
  1. VIRAFERONPEG [Suspect]
     Dosage: 100 Microgram, qw
     Dates: start: 2012
  2. REBETOL [Concomitant]
     Route: 048

REACTIONS (1)
  - Loss of consciousness [Unknown]
